FAERS Safety Report 10020658 (Version 1)
Quarter: 2013Q4

REPORT INFORMATION
  Report Type: Spontaneous
  Country: US (occurrence: None)
  Receive Date: 20131122
  Receipt Date: 20131122
  Transmission Date: 20140711
  Serious: Yes (Other)
  Sender: FDA-Public Use
  Company Number: ADR-2013-01664

PATIENT
  Sex: 0

DRUGS (1)
  1. BACLOFEN INTRATHECAL [Suspect]

REACTIONS (3)
  - Device damage [None]
  - Device dislocation [None]
  - Necrotising fasciitis [None]
